FAERS Safety Report 5710459-5 (Version None)
Quarter: 2008Q2

REPORT INFORMATION
  Report Type: 
  Country: None (occurrence: None)
  Receive Date: 20080418
  Receipt Date: 20080410
  Transmission Date: 20081010
  Serious: Yes (Hospitalization)
  Sender: FDA-Public Use
  Company Number: FR-ABBOTT-08P-056-0446896-00

PATIENT
  Sex: Female

DRUGS (3)
  1. MONOZECLAR [Suspect]
     Indication: PHARYNGOLARYNGEAL PAIN
     Route: 048
     Dates: start: 20070502, end: 20070506
  2. KETOPROFEN [Suspect]
     Indication: PHARYNGOLARYNGEAL PAIN
     Route: 048
     Dates: start: 20070502, end: 20070507
  3. ACETAMINOPHEN AND TRAMADOL HCL [Suspect]
     Indication: PHARYNGOLARYNGEAL PAIN
     Route: 048
     Dates: start: 20070502, end: 20070507

REACTIONS (6)
  - ARTHRALGIA [None]
  - PAIN [None]
  - PRURIGO [None]
  - PYREXIA [None]
  - RASH MACULO-PAPULAR [None]
  - RASH PAPULOSQUAMOUS [None]
